FAERS Safety Report 8419828-6 (Version None)
Quarter: 2012Q2

REPORT INFORMATION
  Report Type: 
  Country: None (occurrence: None)
  Receive Date: 20120607
  Receipt Date: 20120605
  Transmission Date: 20120825
  Serious: No
  Sender: FDA-Public Use
  Company Number: PHEH2012US009948

PATIENT
  Sex: Female
  Weight: 104.31 kg

DRUGS (13)
  1. METHYLPHENIDATE [Concomitant]
  2. TAMSULOSIN HCL [Concomitant]
  3. VESICARE [Concomitant]
  4. CITALOPRAM HYDROBROMIDE [Concomitant]
  5. VITAMIN D [Concomitant]
  6. ASPIRIN [Concomitant]
  7. GILENYA [Suspect]
     Indication: MULTIPLE SCLEROSIS
     Dosage: 0.5 MG, QD
     Route: 048
     Dates: start: 20120430
  8. ANTIDEPRESSANTS [Concomitant]
  9. PROVIGIL [Concomitant]
  10. ETODOLAC [Concomitant]
  11. BACLOFEN [Concomitant]
  12. DIOVAN [Concomitant]
  13. GABAPENTIN [Concomitant]

REACTIONS (2)
  - ELECTROCARDIOGRAM ABNORMAL [None]
  - ATRIOVENTRICULAR BLOCK FIRST DEGREE [None]
